FAERS Safety Report 10047587 (Version 2)
Quarter: 2014Q2

REPORT INFORMATION
  Report Type: Spontaneous
  Country: US (occurrence: US)
  Receive Date: 20140331
  Receipt Date: 20140509
  Transmission Date: 20141212
  Serious: Yes (Other)
  Sender: FDA-Public Use
  Company Number: US-PFIZER INC-2014088900

PATIENT
  Age: 41 Year
  Sex: Male
  Weight: 59 kg

DRUGS (3)
  1. XANAX [Suspect]
     Indication: ANXIETY
     Dosage: 1 MG, TWO TIMES A DAY AS NEEDED (PRN)
     Route: 048
  2. ABILIFY [Concomitant]
     Indication: DEPRESSION
     Dosage: 2 MG, DAILY
  3. MORPHINE [Concomitant]
     Indication: PAIN
     Dosage: 60 MG, TWO TIMES A DAY

REACTIONS (2)
  - Monoplegia [Unknown]
  - Limb injury [Unknown]
